FAERS Safety Report 7736312-3 (Version None)
Quarter: 2011Q3

REPORT INFORMATION
  Report Type: 
  Country: None (occurrence: None)
  Receive Date: 20110908
  Receipt Date: 20110830
  Transmission Date: 20111222
  Serious: Yes (Hospitalization)
  Sender: FDA-Public Use
  Company Number: GB-US-EMD SERONO, INC.-7069617

PATIENT
  Sex: Male

DRUGS (3)
  1. SAIZEN [Suspect]
     Route: 058
     Dates: start: 20110716
  2. SAIZEN [Suspect]
     Indication: PRODUCT USED FOR UNKNOWN INDICATION
     Route: 058
     Dates: start: 20110624, end: 20110701
  3. SAIZEN [Suspect]
     Route: 058
     Dates: start: 20110702, end: 20110703

REACTIONS (5)
  - MALAISE [None]
  - INJECTION SITE RASH [None]
  - RASH [None]
  - VOMITING [None]
  - PYREXIA [None]
